FAERS Safety Report 7243034-4 (Version None)
Quarter: 2011Q1

REPORT INFORMATION
  Report Type: 
  Country: None (occurrence: None)
  Receive Date: 20110125
  Receipt Date: 20100924
  Transmission Date: 20110831
  Serious: No
  Sender: FDA-Public Use
  Company Number: US-AMGEN-KDL440914

PATIENT
  Age: 81 Year
  Sex: Female
  Weight: 61.3 kg

DRUGS (9)
  1. PROLIA [Suspect]
     Indication: OSTEOPOROSIS POSTMENOPAUSAL
     Dosage: 60 MG, UNK
     Dates: start: 20100924
  2. CALCITONIN [Concomitant]
     Dosage: UNK UNK, UNK
  3. PANTOPRAZOLE SODIUM [Concomitant]
     Dosage: 40 MG, UNK
  4. SUCRALFATE [Concomitant]
     Dosage: UNK UNK, UNK
  5. METOPROLOL [Concomitant]
     Dosage: 6.25 MG, UNK
  6. SIMVASTATIN [Concomitant]
     Dosage: 5 MG, UNK
  7. LEVOTHYROXINE SODIUM [Concomitant]
     Dosage: 75 A?G, UNK
  8. ALPRAZOLAM [Concomitant]
     Dosage: .25 MG, UNK
  9. MULTI-VITAMINS [Concomitant]
     Dosage: UNK UNK, UNK

REACTIONS (1)
  - DYSPEPSIA [None]
